FAERS Safety Report 23267535 (Version 8)
Quarter: 2024Q1

REPORT INFORMATION
  Report Type: Spontaneous
  Country: US (occurrence: US)
  Receive Date: 20231206
  Receipt Date: 20240327
  Transmission Date: 20240410
  Serious: No
  Sender: FDA-Public Use
  Company Number: US-PFIZER INC-PV202300189689

PATIENT
  Age: 15 Year
  Sex: Male
  Weight: 63.5 kg

DRUGS (3)
  1. GENOTROPIN [Suspect]
     Active Substance: SOMATROPIN
     Indication: Growth hormone deficiency
     Dosage: JUST ONCE, ONCE IN NIGHT
  2. GENOTROPIN [Suspect]
     Active Substance: SOMATROPIN
     Dosage: EVERY NIGHT IT^S A SHOT
     Route: 030
     Dates: start: 202310, end: 20231119
  3. GENOTROPIN [Suspect]
     Active Substance: SOMATROPIN
     Dosage: 2.6 MG, 1X/DAY
     Route: 030
     Dates: start: 202312

REACTIONS (7)
  - Drug dose omission by device [Unknown]
  - Device mechanical issue [Unknown]
  - Device failure [Unknown]
  - Device leakage [Unknown]
  - Device breakage [Unknown]
  - Device information output issue [Unknown]
  - Product use issue [Unknown]

NARRATIVE: CASE EVENT DATE: 20231001
